FAERS Safety Report 13881746 (Version 3)
Quarter: 2018Q3

REPORT INFORMATION
  Report Type: Report from Study
  Country: CO (occurrence: CO)
  Receive Date: 20170818
  Receipt Date: 20180803
  Transmission Date: 20181010
  Serious: Yes (Hospitalization)
  Sender: FDA-Public Use
  Company Number: PHHY2017CO110133

PATIENT
  Age: 54 Year
  Sex: Female
  Weight: 64 kg

DRUGS (3)
  1. TASIGNA [Suspect]
     Active Substance: NILOTINIB
     Indication: CHRONIC MYELOID LEUKAEMIA
     Dosage: 400 MG, Q12H  (2 CAPSULES OF 200 MG EVERY 12 HOURS)
     Route: 048
     Dates: start: 20161014
  2. ZOLPIDEM [Suspect]
     Active Substance: ZOLPIDEM\ZOLPIDEM TARTRATE
     Indication: PRODUCT USED FOR UNKNOWN INDICATION
     Dosage: UNK
     Route: 065
  3. TASIGNA [Suspect]
     Active Substance: NILOTINIB
     Dosage: 600 MG, QD
     Route: 048
     Dates: start: 20171213

REACTIONS (6)
  - Cardiac failure [Unknown]
  - Inappropriate schedule of drug administration [Unknown]
  - Haemoptysis [Unknown]
  - Platelet count decreased [Unknown]
  - Gingival pain [Unknown]
  - Contusion [Unknown]

NARRATIVE: CASE EVENT DATE: 20171213
